FAERS Safety Report 19206810 (Version 1)
Quarter: 2021Q2

REPORT INFORMATION
  Report Type: Report from Study
  Country: US (occurrence: US)
  Receive Date: 20210503
  Receipt Date: 20210503
  Transmission Date: 20210717
  Serious: Yes (Other)
  Sender: FDA-Public Use
  Company Number: US-BAYER-2021-130443

PATIENT
  Age: 9 Year
  Sex: Female
  Weight: 25.7 kg

DRUGS (2)
  1. CALCIUM CARBONATE. [Suspect]
     Active Substance: CALCIUM CARBONATE
     Indication: HYPOCALCAEMIA
     Dosage: 2000 MG
  2. CALCITRIOL. [Suspect]
     Active Substance: CALCITRIOL
     Dosage: 0.6 MCG, QD

REACTIONS (7)
  - Hypercalciuria [Recovered/Resolved]
  - Gait inability [None]
  - Tetany [None]
  - Product use in unapproved indication [None]
  - Off label use [None]
  - Nephrocalcinosis [Not Recovered/Not Resolved]
  - Drug intolerance [None]
